FAERS Safety Report 5153399-5 (Version None)
Quarter: 2006Q4

REPORT INFORMATION
  Report Type: 
  Country: None (occurrence: None)
  Receive Date: 20061114
  Receipt Date: 20061030
  Transmission Date: 20070319
  Serious: Yes (Hospitalization)
  Sender: FDA-Public Use
  Company Number: 6026947

PATIENT
  Age: 56 Year
  Sex: Male

DRUGS (9)
  1. BISOPROLOL FUMARATE [Suspect]
     Indication: DRUG USE FOR UNKNOWN INDICATION
     Dosage: ORAL
     Route: 048
     Dates: end: 20061005
  2. AMOXICILLIN [Suspect]
     Indication: BURSITIS
     Dosage: ORAL
     Route: 048
     Dates: start: 20060926, end: 20061001
  3. VALSARTAN [Suspect]
     Indication: DRUG USE FOR UNKNOWN INDICATION
     Dosage: ORAL
     Route: 048
     Dates: end: 20061005
  4. HEPSERA [Suspect]
     Indication: HEPATITIS B
     Dosage: ORAL, ORAL
     Route: 048
     Dates: start: 20060929, end: 20061006
  5. HEPSERA [Suspect]
     Indication: HEPATITIS B
     Dosage: ORAL, ORAL
     Route: 048
     Dates: start: 20061011
  6. CORTANCYL (80 MG) (PREDNISONE) [Concomitant]
  7. MOPRAL (10 MG) (OMEPRAZOLE) [Concomitant]
  8. CACIT D3 (COLECALCIFEROL, CALCIUM CARBONATE) [Concomitant]
  9. LAMIVUDINE [Concomitant]

REACTIONS (5)
  - BURSITIS [None]
  - DISEASE RECURRENCE [None]
  - HEPATITIS B [None]
  - HYPOTENSION [None]
  - RASH MORBILLIFORM [None]
